FAERS Safety Report 8216041 (Version 4)
Quarter: 2012Q4

REPORT INFORMATION
  Report Type: 
  Country: US (occurrence: US)
  Receive Date: 20111031
  Receipt Date: 20121119
  Transmission Date: 20130627
  Serious: Yes (Death, Hospitalization, Other)
  Sender: FDA-Public Use
  Company Number: US-ACTELION-A-NJ2011-55762

PATIENT
  Age: 64 Year
  Sex: Male

DRUGS (5)
  1. TRACLEER [Suspect]
     Indication: PULMONARY ARTERIAL HYPERTENSION
     Dosage: UNK
     Route: 048
  2. VELETRI [Suspect]
     Indication: PULMONARY ARTERIAL HYPERTENSION
     Dosage: 16 ng/kg, per min
     Route: 041
     Dates: start: 20110323
  3. VENTAVIS [Concomitant]
     Indication: PULMONARY ARTERIAL HYPERTENSION
     Dosage: UNK
     Route: 055
     Dates: start: 20100726
  4. LETAIRIS [Concomitant]
  5. SILDENAFIL [Concomitant]

REACTIONS (11)
  - Scleroderma [Fatal]
  - Oesophageal haemorrhage [Recovered/Resolved]
  - Vascular cauterisation [Recovered/Resolved]
  - Intestinal haemorrhage [Recovered/Resolved]
  - Gastric haemorrhage [Recovered/Resolved]
  - Oropharyngeal neoplasm benign [Unknown]
  - Parathyroidectomy [Unknown]
  - Haemorrhage [Unknown]
  - Mechanical ventilation [Unknown]
  - Vomiting [Unknown]
  - Syncope [Recovered/Resolved]
